FAERS Safety Report 5314259-X (Version None)
Quarter: 2007Q2

REPORT INFORMATION
  Report Type: 
  Country: None (occurrence: None)
  Receive Date: 20070501
  Receipt Date: 20070423
  Transmission Date: 20071010
  Serious: Yes (Life-Threatening, Hospitalization)
  Sender: FDA-Public Use
  Company Number: US-SANOFI-SYNTHELABO-F01200601285

PATIENT
  Sex: Female

DRUGS (18)
  1. UNSPECIFIED DRUG [Concomitant]
     Dates: start: 20041115
  2. CALCIUM GLUCONATE [Concomitant]
     Dosage: UNK
     Route: 065
     Dates: start: 20051130, end: 20060502
  3. MAGNESIUM SULFATE [Concomitant]
     Dosage: UNK
     Route: 065
     Dates: start: 20051130, end: 20060502
  4. BENADRYL [Concomitant]
     Dosage: UNK
     Route: 065
     Dates: start: 20051130, end: 20060503
  5. DECADRON [Concomitant]
     Dosage: UNK
     Route: 065
     Dates: start: 20051130, end: 20060503
  6. KYTRIL [Concomitant]
     Dosage: UNK
     Route: 065
     Dates: start: 20051130, end: 20060503
  7. IMODIUM [Concomitant]
     Dosage: UNK
     Route: 065
     Dates: start: 20051202, end: 20060523
  8. NEUPOGEN [Concomitant]
     Dosage: UNK
     Route: 065
     Dates: start: 20060111, end: 20060509
  9. ZANTAC [Concomitant]
     Dosage: UNK
     Route: 065
     Dates: start: 20060502, end: 20060502
  10. VITAMIN B6 [Concomitant]
     Dosage: UNK
     Route: 065
     Dates: start: 20051128
  11. BEVACIZUMAB [Suspect]
     Route: 042
     Dates: start: 20051130, end: 20060518
  12. ADVIL [Concomitant]
     Dosage: UNK
     Dates: start: 19850615
  13. LEUCOVORIN CALCIUM [Suspect]
     Route: 042
     Dates: start: 20051130, end: 20060518
  14. LISINOPRIL [Concomitant]
     Dosage: UNK
     Dates: start: 20041115, end: 20060508
  15. FLUOROURACIL [Suspect]
     Dosage: 400MG/M2 (537 MG) IV BOLUS AND 600MG/M2 (895 MG) CONTINUOUS INFUSION Q2W
     Route: 042
     Dates: start: 20051130, end: 20060518
  16. ATENOLOL [Concomitant]
     Dosage: UNK
     Dates: start: 20041115
  17. OXALIPLATIN [Suspect]
     Indication: COLON CANCER
     Route: 042
     Dates: start: 20051130, end: 20060518
  18. PREMARIN [Concomitant]
     Dosage: UNK
     Dates: start: 19950601

REACTIONS (1)
  - RENAL FAILURE ACUTE [None]
